FAERS Safety Report 20809655 (Version 1)
Quarter: 2022Q2

REPORT INFORMATION
  Report Type: Spontaneous
  Country: US (occurrence: US)
  Receive Date: 20220510
  Receipt Date: 20220510
  Transmission Date: 20220721
  Serious: No
  Sender: FDA-Public Use
  Company Number: US-OYSTER POINT PHARMA, INC.-2022OYS00353

PATIENT
  Age: 31 Year
  Sex: Female

DRUGS (1)
  1. TYRVAYA [Suspect]
     Active Substance: VARENICLINE TARTRATE
     Indication: Dry eye
     Dosage: 1 SPRAY, EACH NOSTRIL, 2X/DAY (12 HOURS APART)
     Route: 045

REACTIONS (3)
  - Throat tightness [Unknown]
  - Throat irritation [Unknown]
  - Unevaluable event [Unknown]
